FAERS Safety Report 11253703 (Version 1)
Quarter: 2015Q3

REPORT INFORMATION
  Report Type: Spontaneous
  Country: US (occurrence: None)
  Receive Date: 20150707
  Receipt Date: 20150707
  Transmission Date: 20151125
  Serious: No
  Sender: FDA-Public Use
  Company Number: None

PATIENT
  Age: 36 Year
  Sex: Female
  Weight: 108.86 kg

DRUGS (1)
  1. ESSURE [Suspect]
     Active Substance: DEVICE

REACTIONS (16)
  - Pain [None]
  - Arthralgia [None]
  - Paraesthesia [None]
  - Depression [None]
  - Chest pain [None]
  - Hypoaesthesia [None]
  - Dysmenorrhoea [None]
  - Fungal infection [None]
  - Peripheral swelling [None]
  - Pelvic pain [None]
  - Affective disorder [None]
  - Back pain [None]
  - Muscle spasms [None]
  - Anxiety [None]
  - General physical health deterioration [None]
  - Sexual dysfunction [None]

NARRATIVE: CASE EVENT DATE: 20150625
